FAERS Safety Report 19993045 (Version 2)
Quarter: 2021Q4

REPORT INFORMATION
  Report Type: Spontaneous
  Country: FR (occurrence: FR)
  Receive Date: 20211025
  Receipt Date: 20211102
  Transmission Date: 20220303
  Serious: Yes (Death, Congenital Anomaly, Other)
  Sender: FDA-Public Use
  Company Number: FR-AMNEAL PHARMACEUTICALS-2021-AMRX-04343

PATIENT
  Sex: Male

DRUGS (3)
  1. EMTRICITABINE AND TENOFOVIR DISOPROXIL FUMARATE [Suspect]
     Active Substance: EMTRICITABINE\TENOFOVIR DISOPROXIL FUMARATE
     Indication: Product used for unknown indication
     Route: 064
  2. RITONAVIR [Suspect]
     Active Substance: RITONAVIR
     Indication: Product used for unknown indication
     Route: 064
  3. DARUNAVIR [Suspect]
     Active Substance: DARUNAVIR
     Indication: Product used for unknown indication
     Route: 064

REACTIONS (8)
  - Adverse event [Fatal]
  - Coarctation of the aorta [Unknown]
  - Pulmonary hypertension [Unknown]
  - Atrioventricular septal defect [Unknown]
  - Ventricular hypoplasia [Unknown]
  - Trisomy 21 [Unknown]
  - Gene mutation [Unknown]
  - Foetal exposure during pregnancy [Unknown]
